FAERS Safety Report 5619748-6 (Version None)
Quarter: 2008Q1

REPORT INFORMATION
  Report Type: 
  Country: None (occurrence: None)
  Receive Date: 20080208
  Receipt Date: 20071210
  Transmission Date: 20080703
  Serious: No
  Sender: FDA-Public Use
  Company Number: A0698158A

PATIENT
  Age: 11 Month
  Sex: Female

DRUGS (3)
  1. ALTABAX [Suspect]
     Indication: PERITONITIS BACTERIAL
     Dosage: 1APP SINGLE DOSE
     Route: 061
     Dates: start: 20071207
  2. PULMICORT [Concomitant]
  3. SINGULAIR [Concomitant]

REACTIONS (2)
  - CRYING [None]
  - IRRITABILITY [None]
